FAERS Safety Report 12925466 (Version 3)
Quarter: 2016Q4

REPORT INFORMATION
  Report Type: Spontaneous
  Country: US (occurrence: US)
  Receive Date: 20161109
  Receipt Date: 20161202
  Transmission Date: 20170207
  Serious: Yes (Hospitalization)
  Sender: FDA-Public Use
  Company Number: US-SA-2016SA199535

PATIENT
  Age: 77 Year
  Sex: Male
  Weight: 127 kg

DRUGS (22)
  1. SIMVASTATIN. [Concomitant]
     Active Substance: SIMVASTATIN
     Indication: TOE AMPUTATION
  2. LUMIGAN [Concomitant]
     Active Substance: BIMATOPROST
  3. VITAMIN B12 [Concomitant]
     Active Substance: CYANOCOBALAMIN
  4. HUMALOG [Concomitant]
     Active Substance: INSULIN LISPRO
  5. SOLOSTAR [Concomitant]
     Active Substance: DEVICE
     Indication: DIABETES MELLITUS
  6. BYSTOLIC [Concomitant]
     Active Substance: NEBIVOLOL HYDROCHLORIDE
     Indication: TOE OPERATION
  7. LASIX [Concomitant]
     Active Substance: FUROSEMIDE
     Indication: AORTIC ANEURYSM
     Dates: start: 2005
  8. QUINAPRIL. [Concomitant]
     Active Substance: QUINAPRIL
  9. VITAMIN C [Concomitant]
     Active Substance: ASCORBIC ACID
     Dosage: 1000 A DAY
  10. FLOMAX [Concomitant]
     Active Substance: TAMSULOSIN HYDROCHLORIDE
     Indication: PNEUMONIA
     Dates: start: 2016
  11. FLOMAX [Concomitant]
     Active Substance: TAMSULOSIN HYDROCHLORIDE
     Indication: CARDIAC FAILURE CONGESTIVE
     Dates: start: 2016
  12. GABAPENTIN. [Concomitant]
     Active Substance: GABAPENTIN
     Indication: FOOT AMPUTATION
     Dates: start: 2008
  13. FOLIC ACID. [Concomitant]
     Active Substance: FOLIC ACID
  14. STOOL SOFTENER (DOCUSATE CALCIUM) [Concomitant]
     Active Substance: DOCUSATE CALCIUM
  15. PLAVIX [Concomitant]
     Active Substance: CLOPIDOGREL BISULFATE
     Indication: CARDIAC OPERATION
     Dates: start: 1995
  16. ASPIRIN. [Concomitant]
     Active Substance: ASPIRIN
     Indication: VASCULAR GRAFT
  17. NOVOLOG [Concomitant]
     Active Substance: INSULIN ASPART
     Dosage: 10 U + 3 TIMES A DAY
  18. PANTHENOL/RETINOL/THIAMINE HYDROCHLORIDE/ASCORBIC ACID/ERGOCALCIFEROL/FOLIC ACID/RIBOFLAVIN/NICOTINA [Concomitant]
  19. TOUJEO [Suspect]
     Active Substance: INSULIN GLARGINE
     Indication: DIABETES MELLITUS
     Dosage: DOSE:52 UNIT(S)
     Route: 065
     Dates: start: 20160301
  20. PROSCAR [Concomitant]
     Active Substance: FINASTERIDE
  21. POTASSIUM [Concomitant]
     Active Substance: POTASSIUM
     Indication: SURGERY
     Dosage: 10MEG
  22. VITAMIN D [Concomitant]
     Active Substance: CHOLECALCIFEROL

REACTIONS (2)
  - Hospitalisation [Unknown]
  - Movement disorder [Unknown]
